FAERS Safety Report 23048467 (Version 1)
Quarter: 2023Q4

REPORT INFORMATION
  Report Type: Spontaneous
  Country: US (occurrence: US)
  Receive Date: 20231010
  Receipt Date: 20231010
  Transmission Date: 20240110
  Serious: Yes (Hospitalization)
  Sender: FDA-Public Use
  Company Number: US-STRIDES ARCOLAB LIMITED-2023SP015309

PATIENT
  Age: 9 Month
  Sex: Male

DRUGS (2)
  1. AMOXICILLIN [Suspect]
     Active Substance: AMOXICILLIN
     Indication: Otitis media acute
     Dosage: UNK
     Route: 065
  2. AMOXICILLIN [Suspect]
     Active Substance: AMOXICILLIN
     Dosage: UNK
     Route: 065

REACTIONS (5)
  - Rhinovirus infection [Unknown]
  - Rash maculo-papular [Unknown]
  - Thrombocytosis [Unknown]
  - Anaemia [Unknown]
  - Urticaria [Recovered/Resolved]
